FAERS Safety Report 15233445 (Version 1)
Quarter: 2018Q3

REPORT INFORMATION
  Report Type: Spontaneous
  Country: US (occurrence: US)
  Receive Date: 20180709
  Receipt Date: 20180709
  Transmission Date: 20181010
  Serious: No
  Sender: FDA-Public Use
  Company Number: None

PATIENT
  Age: 41 Year
  Sex: Female
  Weight: 72 kg

DRUGS (1)
  1. FLUTICASON PROPIONATE [Suspect]
     Active Substance: FLUTICASONE PROPIONATE
     Dosage: ?          QUANTITY:120 SPRAY(S);?
     Dates: start: 20180629

REACTIONS (3)
  - Product use issue [None]
  - Rhinalgia [None]
  - Nasal discomfort [None]

NARRATIVE: CASE EVENT DATE: 20180629
